FAERS Safety Report 17610796 (Version 1)
Quarter: 2020Q2

REPORT INFORMATION
  Report Type: Report from Study
  Country: None (occurrence: IL)
  Receive Date: 20200401
  Receipt Date: 20200401
  Transmission Date: 20200713
  Serious: Yes (Other)
  Sender: FDA-Public Use
  Company Number: IL-ABBVIE-20K-082-3294312-00

PATIENT
  Age: 53 Year
  Sex: Female

DRUGS (3)
  1. IRON [Concomitant]
     Active Substance: IRON
     Indication: ANAEMIA
  2. HUMIRA [Suspect]
     Active Substance: ADALIMUMAB
     Route: 058
     Dates: start: 2020
  3. HUMIRA [Suspect]
     Active Substance: ADALIMUMAB
     Indication: COLITIS ULCERATIVE
     Route: 058
     Dates: start: 20200130, end: 2020

REACTIONS (8)
  - Device issue [Unknown]
  - Injection site erythema [Recovered/Resolved]
  - Colitis ulcerative [Not Recovered/Not Resolved]
  - Malaise [Not Recovered/Not Resolved]
  - Device issue [Unknown]
  - Injection site haemorrhage [Recovered/Resolved]
  - Haematochezia [Not Recovered/Not Resolved]
  - Therapeutic product effect incomplete [Unknown]

NARRATIVE: CASE EVENT DATE: 2020
